FAERS Safety Report 19397462 (Version 2)
Quarter: 2021Q2

REPORT INFORMATION
  Report Type: Report from Study
  Country: KR (occurrence: KR)
  Receive Date: 20210610
  Receipt Date: 20210618
  Transmission Date: 20210717
  Serious: Yes (Hospitalization)
  Sender: FDA-Public Use
  Company Number: KR-CELLTRION INC.-2021KR007634

PATIENT

DRUGS (27)
  1. HERZUMA [Suspect]
     Active Substance: TRASTUZUMAB-PKRB
     Indication: BLADDER CANCER
     Dosage: UNK
     Route: 042
     Dates: start: 20200826, end: 20210517
  2. CHLORPHENIRAMINE [CHLORPHENAMINE] [Concomitant]
     Active Substance: CHLORPHENIRAMINE
     Indication: PROPHYLAXIS
     Dosage: 4 MG
     Route: 042
     Dates: start: 20200826, end: 20201210
  3. ACETYLCYSTEIN [Concomitant]
     Active Substance: ACETYLCYSTEINE
     Indication: PROPHYLAXIS
     Dosage: 2 AMP
     Route: 042
     Dates: start: 20210603, end: 20210603
  4. RAMOSETRON [Concomitant]
     Active Substance: RAMOSETRON HYDROCHLORIDE
     Indication: PROPHYLAXIS
     Dosage: 1 AMP
     Route: 042
     Dates: start: 20210603, end: 20210603
  5. NORZYME [Concomitant]
     Indication: PROPHYLAXIS
     Dosage: 3 DF (CAP)
     Route: 048
     Dates: start: 20210604, end: 20210607
  6. ACETAMINOPHEN. [Concomitant]
     Active Substance: ACETAMINOPHEN
     Indication: HEADACHE
     Dosage: 1950 MG
     Route: 048
     Dates: start: 20201008
  7. DERMOFIX [Concomitant]
     Active Substance: SERTACONAZOLE NITRATE
     Indication: ONYCHOMYCOSIS
  8. CICLOPIROX. [Concomitant]
     Active Substance: CICLOPIROX
     Indication: PROPHYLAXIS
     Dosage: 1 APPLICATION
     Route: 061
     Dates: start: 20210415
  9. AMLODIPINE [Concomitant]
     Active Substance: AMLODIPINE BESYLATE
     Indication: HYPERTENSION
     Dosage: 5 MG
     Route: 048
     Dates: start: 20201231, end: 20210414
  10. DERMOFIX [Concomitant]
     Active Substance: SERTACONAZOLE NITRATE
     Indication: PROPHYLAXIS
     Dosage: 1 APPLICATION, PRN
     Route: 061
     Dates: start: 20210415
  11. DEXAMETHASONE. [Concomitant]
     Active Substance: DEXAMETHASONE
     Indication: PROPHYLAXIS
     Dosage: 5 MG
     Route: 042
     Dates: start: 20200826, end: 20201210
  12. PANTOPRAZOLE [Concomitant]
     Active Substance: PANTOPRAZOLE
     Indication: CHEST DISCOMFORT
     Dosage: 60 MG
     Route: 048
     Dates: start: 20210512
  13. PANTOPRAZOLE [Concomitant]
     Active Substance: PANTOPRAZOLE
     Indication: PROPHYLAXIS
     Dosage: 1 VIAL
     Route: 042
     Dates: start: 20210603, end: 20210603
  14. LOPROX NAIL LACQUER [Concomitant]
     Indication: ONYCHOMYCOSIS
  15. SERTACONAZOLE [Concomitant]
     Active Substance: SERTACONAZOLE
     Indication: PROPHYLAXIS
     Dosage: 1 APPLICATION
     Route: 061
     Dates: start: 20210415
  16. FAMOTIDINE. [Concomitant]
     Active Substance: FAMOTIDINE
     Indication: PROPHYLAXIS
     Dosage: 40 MG
     Route: 048
     Dates: start: 20200826, end: 20201230
  17. FAMOTIDINE. [Concomitant]
     Active Substance: FAMOTIDINE
     Dosage: 20 MG
     Route: 042
     Dates: start: 20200826, end: 20201210
  18. BISACODYL. [Concomitant]
     Active Substance: BISACODYL
     Indication: PROPHYLAXIS
     Dosage: 2 DF (SUP.)
     Route: 054
     Dates: start: 20210602, end: 20210602
  19. FLOMOXEF [Concomitant]
     Active Substance: FLOMOXEF
     Indication: PROPHYLAXIS
     Dosage: 500 MG
     Route: 042
     Dates: start: 20210602, end: 20210603
  20. PACLITAXEL. [Suspect]
     Active Substance: PACLITAXEL
     Indication: BLADDER CANCER
     Dosage: UNK
     Route: 042
     Dates: start: 20200826, end: 20210517
  21. ACETAMINOPHEN. [Concomitant]
     Active Substance: ACETAMINOPHEN
     Indication: PROPHYLAXIS
     Dosage: 1330 MG
     Route: 048
     Dates: start: 20210604, end: 20210607
  22. PANTOLINE [Concomitant]
     Active Substance: PANTOPRAZOLE SODIUM
     Indication: CHEST DISCOMFORT
     Dosage: 20 MG, TID
     Route: 048
     Dates: start: 20210512
  23. ACECLOFENAC [Concomitant]
     Active Substance: ACECLOFENAC
     Indication: PROPHYLAXIS
     Dosage: 200 MG
     Route: 048
     Dates: start: 20200826, end: 20201230
  24. PROPRANOLOL [Concomitant]
     Active Substance: PROPRANOLOL HYDROCHLORIDE
     Indication: PROPHYLAXIS
     Dosage: 10 MG
     Route: 048
     Dates: start: 20210602, end: 20210602
  25. ACETAMINOPHEN. [Concomitant]
     Active Substance: ACETAMINOPHEN
     Indication: PROPHYLAXIS
     Dosage: 650 MG, TID
     Route: 048
     Dates: start: 20201008
  26. LOPROX NAIL LACQUER [Concomitant]
     Indication: PROPHYLAXIS
     Dosage: 1 APPLICATION, PRN
     Route: 061
     Dates: start: 20210415
  27. ITOPRIDE [Concomitant]
     Active Substance: ITOPRIDE
     Indication: PROPHYLAXIS
     Dosage: 50 MG
     Route: 048
     Dates: start: 20210604, end: 20210604

REACTIONS (2)
  - Off label use [Unknown]
  - Haematuria [Recovered/Resolved]

NARRATIVE: CASE EVENT DATE: 20210429
